FAERS Safety Report 4313778-2 (Version None)
Quarter: 2004Q1

REPORT INFORMATION
  Report Type: 
  Country: None (occurrence: None)
  Receive Date: 20040305
  Receipt Date: 20040225
  Transmission Date: 20041129
  Serious: Yes (Death)
  Sender: FDA-Public Use
  Company Number: 2004UW03417

PATIENT

DRUGS (2)
  1. SEROQUEL [Suspect]
     Dosage: 7 TABS ONCE
  2. ATIVAN [Suspect]
     Dosage: 17.5 MG ONCE PO
     Route: 048

REACTIONS (1)
  - OVERDOSE [None]
